FAERS Safety Report 5383626-0 (Version None)
Quarter: 2007Q3

REPORT INFORMATION
  Report Type: 
  Country: None (occurrence: None)
  Receive Date: 20070706
  Receipt Date: 20070621
  Transmission Date: 20080115
  Serious: Yes (Hospitalization)
  Sender: FDA-Public Use
  Company Number: 2007BI013460

PATIENT
  Age: 26 Year
  Sex: Male

DRUGS (3)
  1. NATALIZUMAB [Suspect]
     Indication: MULTIPLE SCLEROSIS
     Dosage: 300 MG;QM; IV
     Route: 042
     Dates: start: 20061101
  2. CYMBALTA [Concomitant]
  3. METHADONE HCL [Concomitant]

REACTIONS (7)
  - CATHETER RELATED COMPLICATION [None]
  - DEEP VEIN THROMBOSIS [None]
  - DEPRESSION [None]
  - ENCEPHALITIS HERPES [None]
  - GASTRIC ULCER [None]
  - HERPES OESOPHAGITIS [None]
  - STREPTOCOCCAL INFECTION [None]
